FAERS Safety Report 8523473-1 (Version None)
Quarter: 2012Q3

REPORT INFORMATION
  Report Type: 
  Country: None (occurrence: None)
  Receive Date: 20120720
  Receipt Date: 20111126
  Transmission Date: 20120928
  Serious: Yes (Hospitalization)
  Sender: FDA-Public Use
  Company Number: US-BAYER-201018226NA

PATIENT
  Age: 17 Year
  Sex: Female
  Weight: 62 kg

DRUGS (15)
  1. ORTHO-NOVUM 1/35 [Concomitant]
     Route: 048
     Dates: start: 20080602
  2. DEPAKOTE [Concomitant]
     Indication: BIPOLAR DISORDER
  3. NORMENSAL [Concomitant]
     Route: 048
     Dates: start: 20080602
  4. YAZ [Suspect]
     Indication: PREMENSTRUAL SYNDROME
  5. DEPAKOTE [Concomitant]
     Indication: MIGRAINE
     Dosage: 1000 MG (DAILY DOSE), BID,
     Dates: start: 20080201, end: 20090603
  6. ABILIFY [Concomitant]
  7. CIPROFLOXACIN HCL [Concomitant]
     Indication: PELVIC INFLAMMATORY DISEASE
     Dates: start: 20071112
  8. ROBAXIN [Concomitant]
  9. YAZ [Suspect]
     Indication: ORAL CONTRACEPTION
     Route: 048
     Dates: start: 20061012, end: 20071112
  10. NORTREL [ETHINYLESTRADIOL,NORETHISTERONE] [Concomitant]
  11. NORMENSAL [Concomitant]
     Route: 048
     Dates: start: 20071112, end: 20080428
  12. ORTHO-NOVUM 1/35 [Concomitant]
     Indication: ORAL CONTRACEPTION
     Route: 048
     Dates: start: 20071112, end: 20080428
  13. CONCERTA [Concomitant]
     Indication: ATTENTION DEFICIT/HYPERACTIVITY DISORDER
  14. GEODON [Concomitant]
     Indication: BIPOLAR DISORDER
     Dates: start: 20080101, end: 20100615
  15. POTASSIUM CHLORIDE [Concomitant]
     Indication: HYPOKALAEMIA
     Route: 042

REACTIONS (7)
  - BILIARY DYSKINESIA [None]
  - CHOLECYSTITIS CHRONIC [None]
  - NAUSEA [None]
  - GALLBLADDER DISORDER [None]
  - ABDOMINAL PAIN UPPER [None]
  - VOMITING [None]
  - PERIUMBILICAL ABSCESS [None]
